FAERS Safety Report 13795775 (Version 2)
Quarter: 2017Q3

REPORT INFORMATION
  Report Type: Report from Study
  Country: US (occurrence: US)
  Receive Date: 20170726
  Receipt Date: 20170825
  Transmission Date: 20171127
  Serious: Yes (Hospitalization)
  Sender: FDA-Public Use
  Company Number: US-EXELIXIS-CABO-17009876

PATIENT
  Age: 14 Year
  Sex: Female

DRUGS (8)
  1. CABOMETYX [Suspect]
     Active Substance: CABOZANTINIB S-MALATE
     Indication: MALAISE
     Dosage: 60 MG, 6 DAYS A WEEK NOT THURS
     Route: 048
     Dates: end: 20170713
  2. MVI [Concomitant]
     Active Substance: VITAMINS
  3. PHENERGAN [Concomitant]
     Active Substance: PROMETHAZINE HYDROCHLORIDE
  4. AMLODIPINE [Concomitant]
     Active Substance: AMLODIPINE BESYLATE
  5. MEGESTROL [Concomitant]
     Active Substance: MEGESTROL
  6. CABOMETYX [Suspect]
     Active Substance: CABOZANTINIB S-MALATE
     Dosage: 40 MG, 6 DAYS A WEEK NOT THURS
     Route: 048
     Dates: start: 20170724, end: 20170730
  7. OXYCODONE [Concomitant]
     Active Substance: OXYCODONE
  8. ZOFRAN [Concomitant]
     Active Substance: ONDANSETRON HYDROCHLORIDE

REACTIONS (3)
  - Clostridium difficile infection [Recovered/Resolved with Sequelae]
  - Hypertension [Recovering/Resolving]
  - Toxicity to various agents [Not Recovered/Not Resolved]

NARRATIVE: CASE EVENT DATE: 20170703
